FAERS Safety Report 6916516-X (Version None)
Quarter: 2010Q3

REPORT INFORMATION
  Report Type: 
  Country: None (occurrence: None)
  Receive Date: 20100804
  Receipt Date: 20100721
  Transmission Date: 20110219
  Serious: Yes (Hospitalization, Other)
  Sender: FDA-Public Use
  Company Number: 651897

PATIENT
  Age: 43 Year
  Sex: Male

DRUGS (5)
  1. DOXORUBICIN HYDROCHLORIDE [Suspect]
     Dates: start: 20100326
  2. VINCRISTINE SULFATE [Suspect]
  3. AMISULPRIDE [Concomitant]
  4. CYCLOPHOSPHAMIDE [Suspect]
     Dates: start: 20100326
  5. PREDNISOLONE [Concomitant]
     Dates: start: 20100326

REACTIONS (3)
  - LEUKOPENIA [None]
  - LYMPHOMA [None]
  - NEUTROPENIA [None]
